FAERS Safety Report 7018646-3 (Version None)
Quarter: 2010Q3

REPORT INFORMATION
  Report Type: 
  Country: None (occurrence: None)
  Receive Date: 20100922
  Receipt Date: 20080428
  Transmission Date: 20110219
  Serious: Yes (Other)
  Sender: FDA-Public Use
  Company Number: UK-2008-00174

PATIENT
  Age: 79 Year
  Sex: Male
  Weight: 70 kg

DRUGS (4)
  1. LISINOPRIL [Suspect]
     Indication: HYPERTENSION
     Dosage: 2.5 MG, ORAL
     Route: 048
     Dates: start: 20080208, end: 20080307
  2. CANDESARTAN (UNKNOWN) [Suspect]
     Indication: HYPERTENSION
     Dosage: 2 MG, ORAL
     Route: 048
     Dates: start: 20080307, end: 20080311
  3. CODEINE PHOSPHATE, PARACETAMOL (CO-CODAMOL) (UNKNOWN) [Concomitant]
  4. OMEPRAZOLE [Concomitant]

REACTIONS (3)
  - CONFUSIONAL STATE [None]
  - DELUSION [None]
  - HALLUCINATION [None]
